FAERS Safety Report 20148209 (Version 4)
Quarter: 2022Q1

REPORT INFORMATION
  Report Type: Report from Study
  Country: US (occurrence: US)
  Receive Date: 20211204
  Receipt Date: 20220224
  Transmission Date: 20220423
  Serious: No
  Sender: FDA-Public Use
  Company Number: US-NOVARTISTESTPH-NVSC2021US275939

PATIENT
  Sex: Female

DRUGS (1)
  1. ENTRESTO [Suspect]
     Active Substance: SACUBITRIL\VALSARTAN
     Dosage: 1 DOSAGE FORM, BID (24/26 MG)
     Route: 048
     Dates: start: 202111

REACTIONS (6)
  - Joint swelling [Recovered/Resolved]
  - Dyspnoea [Unknown]
  - Fatigue [Unknown]
  - Blood potassium decreased [Unknown]
  - Agitation [Unknown]
  - Cardiac disorder [Unknown]
